FAERS Safety Report 21966397 (Version 1)
Quarter: 2023Q1

REPORT INFORMATION
  Report Type: Spontaneous
  Country: US (occurrence: US)
  Receive Date: 20230208
  Receipt Date: 20230208
  Transmission Date: 20230418
  Serious: No
  Sender: FDA-Public Use
  Company Number: US-BRISTOL-MYERS SQUIBB COMPANY-2023-016040

PATIENT
  Age: 60 Year
  Sex: Female
  Weight: 78.02 kg

DRUGS (10)
  1. SOTYKTU [Suspect]
     Active Substance: DEUCRAVACITINIB
     Indication: Psoriasis
     Dosage: FREQ: DAILY
     Route: 048
     Dates: start: 20230120
  2. SOTYKTU [Suspect]
     Active Substance: DEUCRAVACITINIB
     Indication: Prostatic specific antigen
  3. VITAMIN A [Concomitant]
     Active Substance: VITAMIN A
     Indication: Product used for unknown indication
  4. MAGNESIUM [Concomitant]
     Active Substance: MAGNESIUM
     Indication: Product used for unknown indication
  5. SERTRALINE [Concomitant]
     Active Substance: SERTRALINE HYDROCHLORIDE
     Indication: Product used for unknown indication
  6. FOLIC ACID [Concomitant]
     Active Substance: FOLIC ACID
     Indication: Product used for unknown indication
  7. AMITRIPTYLINE [Concomitant]
     Active Substance: AMITRIPTYLINE
     Indication: Product used for unknown indication
  8. VITAMIN D3 [Concomitant]
     Active Substance: CHOLECALCIFEROL
     Indication: Product used for unknown indication
     Dosage: 5000 IU
  9. OMEGA 3 KRILL OIL [Concomitant]
     Indication: Product used for unknown indication
  10. CYCLOSPORINE [Concomitant]
     Active Substance: CYCLOSPORINE
     Indication: Product used for unknown indication

REACTIONS (12)
  - Headache [Unknown]
  - Chest pain [Unknown]
  - Photosensitivity reaction [Unknown]
  - Nausea [Unknown]
  - Visual impairment [Unknown]
  - Rash macular [Unknown]
  - Sinusitis [Unknown]
  - Acne [Unknown]
  - Hyperacusis [Unknown]
  - Anxiety [Unknown]
  - Illness [Unknown]
  - Vomiting [Unknown]

NARRATIVE: CASE EVENT DATE: 20230101
